FAERS Safety Report 6248520-1 (Version None)
Quarter: 2009Q2

REPORT INFORMATION
  Report Type: 
  Country: None (occurrence: None)
  Receive Date: 20090629
  Receipt Date: 20090625
  Transmission Date: 20091009
  Serious: Yes (Disabling, Other)
  Sender: FDA-Public Use
  Company Number: GB-JNJFOC-20090505988

PATIENT
  Age: 19 Year
  Sex: Female

DRUGS (3)
  1. OFLOXACIN [Suspect]
     Indication: PELVIC INFLAMMATORY DISEASE
     Route: 065
  2. FLAGYL [Suspect]
     Indication: PELVIC INFLAMMATORY DISEASE
     Route: 065
  3. AMOXICILLIN AND CLAVULANATE POTASSIUM [Concomitant]
     Indication: URINARY TRACT INFECTION
     Route: 065

REACTIONS (1)
  - PSYCHOTIC DISORDER DUE TO A GENERAL MEDICAL CONDITION [None]
